FAERS Safety Report 8487653-6 (Version None)
Quarter: 2012Q3

REPORT INFORMATION
  Report Type: 
  Country: None (occurrence: None)
  Receive Date: 20120705
  Receipt Date: 20120625
  Transmission Date: 20120928
  Serious: Yes (Hospitalization, Other)
  Sender: FDA-Public Use
  Company Number: US-BAYER-2012-003811

PATIENT
  Age: 31 Year
  Sex: Female
  Weight: 70.295 kg

DRUGS (11)
  1. TRAMADOL HCL [Concomitant]
     Indication: PAIN
     Dosage: UNK
     Dates: start: 20060101
  2. RESTORIL [Concomitant]
     Dosage: 15 MG, EVERY BEDTIME
     Route: 048
  3. YAZ [Suspect]
     Dosage: UNK
     Route: 048
     Dates: start: 20060101, end: 20070101
  4. ALLERGY SHOTS [Concomitant]
  5. PROVENTIL [Concomitant]
     Dosage: UNK
     Dates: start: 20050101
  6. VICODIN [Concomitant]
     Indication: PAIN
     Dosage: UNK
     Dates: start: 20060101
  7. IBUPROFEN [Concomitant]
     Dosage: UNK UNK, PRN
  8. RELPAX [Concomitant]
     Dosage: UNK
  9. ZOFRAN [Concomitant]
     Indication: NAUSEA
     Dosage: UNK
     Dates: start: 20080101, end: 20090101
  10. VICODIN [Concomitant]
     Dosage: UNK
     Dates: start: 20090210
  11. XANAX [Concomitant]
     Dosage: 0.25 MG, TID, AS NEEDED
     Route: 048

REACTIONS (5)
  - PANCREATITIS [None]
  - CHOLECYSTITIS CHRONIC [None]
  - GALLBLADDER INJURY [None]
  - FEAR [None]
  - PAIN [None]
